FAERS Safety Report 4474764-5 (Version None)
Quarter: 2004Q4

REPORT INFORMATION
  Report Type: 
  Country: None (occurrence: None)
  Receive Date: 20041012
  Receipt Date: 20040927
  Transmission Date: 20050328
  Serious: Yes (Death)
  Sender: FDA-Public Use
  Company Number: 150-20785-04080344

PATIENT
  Age: 18 Year
  Sex: Male

DRUGS (11)
  1. THALIDOMIDE - PHARMION (THALIDOMIDE) (100 MILLIGRAM, CAPSULES) [Suspect]
     Indication: NEOVASCULARISATION
     Dosage: 200 MG, DAILY, ORAL
     Route: 048
     Dates: start: 20040707, end: 20040101
  2. CASPOFUNGIN (CASPOFUNGIN) [Concomitant]
  3. VANCOMYCIN [Concomitant]
  4. CIPROFLOXACIN [Concomitant]
  5. CYKLOKAPRON [Concomitant]
  6. ANTIHEMOPHILIC FACTOR (HUMAN) [Concomitant]
  7. CLONIDINE HCL [Concomitant]
  8. DESMOPRESSIN ACETATE (DESMOPRESSIN ACETATE) [Concomitant]
  9. VINCRISTINE [Concomitant]
  10. ANTIBIOTICS (ANTIBIOTICS) [Concomitant]
  11. ANESTHETICS [Concomitant]

REACTIONS (4)
  - ACIDOSIS [None]
  - HAEMOPTYSIS [None]
  - HAEMORRHAGE [None]
  - HYPOXIA [None]
